FAERS Safety Report 14119862 (Version 1)
Quarter: 2017Q4

REPORT INFORMATION
  Report Type: Spontaneous
  Country: US (occurrence: None)
  Receive Date: 20171024
  Receipt Date: 20171024
  Transmission Date: 20180321
  Serious: Yes (Hospitalization)
  Sender: FDA-Public Use
  Company Number: None

PATIENT

DRUGS (2)
  1. OXYCONTIN [Suspect]
     Active Substance: OXYCODONE HYDROCHLORIDE
  2. MS CONTIN [Suspect]
     Active Substance: MORPHINE SULFATE

REACTIONS (2)
  - Drug prescribing error [None]
  - Product name confusion [None]
